FAERS Safety Report 15486274 (Version 1)
Quarter: 2018Q4

REPORT INFORMATION
  Report Type: Spontaneous
  Country: US (occurrence: US)
  Receive Date: 20181011
  Receipt Date: 20181011
  Transmission Date: 20190205
  Serious: No
  Sender: FDA-Public Use
  Company Number: US-009507513-1809USA005102

PATIENT
  Age: 33 Year
  Sex: Female

DRUGS (1)
  1. ZEPATIER [Suspect]
     Active Substance: ELBASVIR\GRAZOPREVIR
     Indication: HEPATITIS C
     Dosage: (STRENGTH 100/50 MG) 1 TABLET DAILY
     Route: 048

REACTIONS (2)
  - Headache [Unknown]
  - Nausea [Unknown]
